FAERS Safety Report 18610258 (Version 1)
Quarter: 2020Q4

REPORT INFORMATION
  Report Type: Spontaneous
  Country: US (occurrence: US)
  Receive Date: 20201211
  Receipt Date: 20201211
  Transmission Date: 20210114
  Serious: Yes (Death)
  Sender: FDA-Public Use
  Company Number: None

PATIENT
  Age: 89 Year
  Sex: Male
  Weight: 68 kg

DRUGS (1)
  1. BAMLANIVIMAB. [Suspect]
     Active Substance: BAMLANIVIMAB

REACTIONS (6)
  - Oxygen saturation decreased [None]
  - Rales [None]
  - Pulse absent [None]
  - Blood pressure decreased [None]
  - Dyspnoea [None]
  - Confusional state [None]

NARRATIVE: CASE EVENT DATE: 20201211
